FAERS Safety Report 13896807 (Version 1)
Quarter: 2017Q3

REPORT INFORMATION
  Report Type: Spontaneous
  Country: MX (occurrence: MX)
  Receive Date: 20170823
  Receipt Date: 20170823
  Transmission Date: 20171127
  Serious: Yes (Other)
  Sender: FDA-Public Use
  Company Number: MX-PFIZER INC-2017358671

PATIENT
  Age: 68 Year
  Sex: Female

DRUGS (4)
  1. XALATAN [Suspect]
     Active Substance: LATANOPROST
     Dosage: 2.5 ML, UNK
  2. ZESTRIL [Concomitant]
     Active Substance: LISINOPRIL
     Dosage: UNK
  3. TAFIL [Suspect]
     Active Substance: ALPRAZOLAM
     Dosage: UNK
  4. GAMO [Concomitant]
     Dosage: UNK

REACTIONS (3)
  - Visual impairment [Not Recovered/Not Resolved]
  - Dementia Alzheimer^s type [Not Recovered/Not Resolved]
  - Memory impairment [Not Recovered/Not Resolved]
